FAERS Safety Report 11295697 (Version 1)
Quarter: 2015Q3

REPORT INFORMATION
  Report Type: Spontaneous
  Country: US (occurrence: None)
  Receive Date: 20150722
  Receipt Date: 20150722
  Transmission Date: 20151125
  Serious: Yes (Other)
  Sender: FDA-Public Use
  Company Number: None

PATIENT
  Age: 37 Year
  Sex: Male

DRUGS (1)
  1. OXYCODONE 30MG CARACO [Suspect]
     Active Substance: OXYCODONE
     Indication: PAIN
     Dosage: 1
     Route: 048
     Dates: start: 20150719, end: 20150719

REACTIONS (3)
  - Skin burning sensation [None]
  - Pruritus [None]
  - Restlessness [None]

NARRATIVE: CASE EVENT DATE: 20150719
